FAERS Safety Report 15819530 (Version 1)
Quarter: 2019Q1

REPORT INFORMATION
  Report Type: Report from Study
  Country: IT (occurrence: IT)
  Receive Date: 20190114
  Receipt Date: 20190114
  Transmission Date: 20190417
  Serious: Yes (Other)
  Sender: FDA-Public Use
  Company Number: IT-TEVA-2019-IT-998520

PATIENT
  Age: 77 Year
  Sex: Female

DRUGS (1)
  1. RANITIDINE HYDROCHLORIDE. [Suspect]
     Active Substance: RANITIDINE HYDROCHLORIDE
     Indication: GASTROOESOPHAGEAL REFLUX DISEASE
     Dosage: 300 MILLIGRAM DAILY;
     Route: 048
     Dates: start: 20181010, end: 20181010

REACTIONS (1)
  - Rash generalised [Recovered/Resolved]

NARRATIVE: CASE EVENT DATE: 20181011
